FAERS Safety Report 23979828 (Version 2)
Quarter: 2024Q2

REPORT INFORMATION
  Report Type: Report from Study
  Country: CA (occurrence: CA)
  Receive Date: 20240616
  Receipt Date: 20240622
  Transmission Date: 20240715
  Serious: Yes (Hospitalization)
  Sender: FDA-Public Use
  Company Number: CA-ABBVIE-5797839

PATIENT
  Age: 85 Year
  Sex: Female

DRUGS (1)
  1. SKYRIZI [Suspect]
     Active Substance: RISANKIZUMAB-RZAA
     Indication: Crohn^s disease
     Route: 042
     Dates: start: 20240502

REACTIONS (5)
  - Dehydration [Unknown]
  - Anaemia [Unknown]
  - Asthenia [Unknown]
  - Urinary tract infection [Unknown]
  - Haematochezia [Unknown]

NARRATIVE: CASE EVENT DATE: 20240101
